FAERS Safety Report 18012536 (Version 7)
Quarter: 2020Q3

REPORT INFORMATION
  Report Type: Report from Study
  Country: US (occurrence: US)
  Receive Date: 20200713
  Receipt Date: 20200818
  Transmission Date: 20201103
  Serious: Yes (Hospitalization, Other)
  Sender: FDA-Public Use
  Company Number: US-GILEAD-2020-0481483

PATIENT
  Age: 52 Year
  Sex: Male

DRUGS (5)
  1. SILDENAFIL. [Concomitant]
     Active Substance: SILDENAFIL
  2. UPTRAVI [Suspect]
     Active Substance: SELEXIPAG
     Indication: PRODUCT USED FOR UNKNOWN INDICATION
     Dosage: UNK
  3. AMBRISENTAN [Suspect]
     Active Substance: AMBRISENTAN
     Indication: PULMONARY ARTERIAL HYPERTENSION
     Dosage: 10 MG, QD
     Route: 065
     Dates: start: 20200505
  4. REVATIO [Concomitant]
     Active Substance: SILDENAFIL CITRATE
  5. UPTRAVI [Suspect]
     Active Substance: SELEXIPAG
     Dosage: 600 MCG
     Route: 065
     Dates: start: 20200722

REACTIONS (37)
  - Muscular weakness [Unknown]
  - Oedema [Not Recovered/Not Resolved]
  - Emotional disorder [Not Recovered/Not Resolved]
  - Oedema peripheral [Not Recovered/Not Resolved]
  - Hypotension [Unknown]
  - Cardiac disorder [Not Recovered/Not Resolved]
  - Eye disorder [Unknown]
  - Gait disturbance [Not Recovered/Not Resolved]
  - Feeling abnormal [Not Recovered/Not Resolved]
  - Memory impairment [Not Recovered/Not Resolved]
  - Somnolence [Not Recovered/Not Resolved]
  - Oxygen consumption increased [Unknown]
  - Cardiomegaly [Not Recovered/Not Resolved]
  - Abdominal distension [Not Recovered/Not Resolved]
  - Pulmonary oedema [Not Recovered/Not Resolved]
  - Tachycardia [Unknown]
  - Drug ineffective [Not Recovered/Not Resolved]
  - Rectal discharge [Not Recovered/Not Resolved]
  - Arthralgia [Unknown]
  - Chest discomfort [Not Recovered/Not Resolved]
  - Chest discomfort [Not Recovered/Not Resolved]
  - Nausea [Unknown]
  - Dizziness [Not Recovered/Not Resolved]
  - Insomnia [Not Recovered/Not Resolved]
  - Limb discomfort [Unknown]
  - Heart rate irregular [Unknown]
  - Frequent bowel movements [Not Recovered/Not Resolved]
  - Agitation [Not Recovered/Not Resolved]
  - Palpitations [Unknown]
  - Paraesthesia [Not Recovered/Not Resolved]
  - Prohormone brain natriuretic peptide increased [Unknown]
  - Anger [Not Recovered/Not Resolved]
  - Stress [Not Recovered/Not Resolved]
  - Superficial vein prominence [Unknown]
  - Arthritis [Not Recovered/Not Resolved]
  - Haematocrit decreased [Unknown]
  - Drug hypersensitivity [Not Recovered/Not Resolved]

NARRATIVE: CASE EVENT DATE: 202007
